FAERS Safety Report 9735790 (Version 4)
Quarter: 2014Q1

REPORT INFORMATION
  Report Type: Spontaneous
  Country: JP (occurrence: JP)
  Receive Date: 20131206
  Receipt Date: 20140205
  Transmission Date: 20141002
  Serious: Yes (Hospitalization)
  Sender: FDA-Public Use
  Company Number: JP-SA-2013SA124751

PATIENT
  Age: 78 Year
  Sex: Female
  Weight: 45 kg

DRUGS (15)
  1. PLAVIX [Suspect]
     Indication: CORONARY ARTERIAL STENT INSERTION
     Route: 048
     Dates: start: 201206, end: 20130801
  2. SINGULAIR [Suspect]
     Indication: ASTHMA
     Dosage: STRENGTH: 10 MG
     Route: 048
     Dates: end: 20130718
  3. THYRADIN [Suspect]
     Indication: HYPOTHYROIDISM
     Dosage: STRENGTH: 50 MG
     Route: 048
     Dates: start: 201305
  4. BAYASPIRIN [Suspect]
     Indication: ACUTE MYOCARDIAL INFARCTION
     Dosage: STRENGTH: 100 MG
     Route: 048
  5. BAYASPIRIN [Suspect]
     Indication: ACUTE MYOCARDIAL INFARCTION
     Dosage: STRENGTH: 100 MG
     Route: 048
     Dates: start: 201206, end: 20130808
  6. MAGNESIUM OXIDE [Concomitant]
  7. OLMETEC [Concomitant]
     Indication: HYPERTENSION
     Dosage: STRENGTH: 20 MG
     Route: 048
     Dates: start: 201206
  8. FAMOTIDINE [Concomitant]
  9. CRESTOR [Concomitant]
     Indication: HYPERLIPIDAEMIA
     Dosage: STRENGTH: 2.5 MG, IN MORNING
     Route: 048
     Dates: start: 201206
  10. COMTAN [Concomitant]
  11. DOPACOL [Concomitant]
  12. ARTIST [Concomitant]
  13. DIART [Concomitant]
     Indication: HYPERTENSION
     Route: 048
  14. MENESIT [Concomitant]
     Indication: PARKINSON^S DISEASE
     Dosage: STRENGTH: 100 MG.
     Route: 048
     Dates: start: 2011
  15. TAKEPRON [Concomitant]
     Indication: GASTROOESOPHAGEAL REFLUX DISEASE
     Route: 048

REACTIONS (3)
  - Eosinophilic pneumonia chronic [Recovered/Resolved]
  - Cough [Recovered/Resolved]
  - Dyspnoea [Recovered/Resolved]
